FAERS Safety Report 8289460-6 (Version None)
Quarter: 2012Q2

REPORT INFORMATION
  Report Type: 
  Country: None (occurrence: None)
  Receive Date: 20120417
  Receipt Date: 20120406
  Transmission Date: 20120825
  Serious: Yes (Hospitalization)
  Sender: FDA-Public Use
  Company Number: JP-BAYER-2012-011857

PATIENT
  Age: 71 Year
  Sex: Female
  Weight: 53 kg

DRUGS (6)
  1. CYTOTEC [Concomitant]
     Indication: GASTRITIS PROPHYLAXIS
     Dosage: DAILY DOSE 800 ?G
     Route: 048
     Dates: start: 20120204, end: 20120207
  2. FAMOTIDINE [Concomitant]
     Indication: GASTRITIS PROPHYLAXIS
     Dosage: DAILY DOSE 20 MG
     Route: 048
     Dates: start: 20100726
  3. BIFIDOBACTERIUM BIFIDUM [Concomitant]
     Indication: DISBACTERIOSIS
     Dosage: DAILY DOSE 3 G
     Route: 048
     Dates: start: 20120204, end: 20120224
  4. PURSENNID [Concomitant]
     Indication: CONSTIPATION
     Dosage: DAILY DOSE 12 MG
     Route: 048
     Dates: start: 20120208, end: 20120217
  5. MAGNESIUM SULFATE [Concomitant]
     Indication: CONSTIPATION
     Dosage: DAILY DOSE 750 MG
     Route: 048
     Dates: start: 20100726
  6. ASPIRIN [Suspect]
     Indication: CEREBROVASCULAR ACCIDENT PROPHYLAXIS
     Dosage: 100 MG, QD
     Route: 048
     Dates: start: 20100726, end: 20120101

REACTIONS (2)
  - LEUKOPENIA [None]
  - THROMBOCYTOPENIA [None]
